FAERS Safety Report 11623210 (Version 1)
Quarter: 2015Q4

REPORT INFORMATION
  Report Type: Spontaneous
  Country: US (occurrence: US)
  Receive Date: 20151013
  Receipt Date: 20151013
  Transmission Date: 20160304
  Serious: No
  Sender: FDA-Public Use
  Company Number: US-JNJFOC-20150424717

PATIENT
  Age: 30 Year
  Sex: Female
  Weight: 59.88 kg

DRUGS (2)
  1. JR TYLENOL [Suspect]
     Active Substance: ACETAMINOPHEN
     Indication: BACK PAIN
     Route: 048
  2. JR TYLENOL [Suspect]
     Active Substance: ACETAMINOPHEN
     Route: 048

REACTIONS (5)
  - Product quality issue [None]
  - Off label use [Unknown]
  - Drug administered to patient of inappropriate age [None]
  - Wrong drug administered [Unknown]
  - Therapeutic response unexpected [Unknown]
